FAERS Safety Report 4461637-7 (Version None)
Quarter: 2004Q3

REPORT INFORMATION
  Report Type: 
  Country: None (occurrence: None)
  Receive Date: 20040923
  Receipt Date: 20040910
  Transmission Date: 20050211
  Serious: No
  Sender: FDA-Public Use
  Company Number: 02100-JPN-04-0209

PATIENT
  Age: 62 Year
  Sex: Male

DRUGS (6)
  1. CILOSTAZOL [Suspect]
     Indication: LACUNAR INFARCTION
     Dosage: 200 MG, ORAL
     Route: 048
     Dates: start: 20031209, end: 20040108
  2. VOGLIBOSE [Concomitant]
  3. NICERGOLINE [Concomitant]
  4. MAGNESIUM OXIDE [Concomitant]
  5. METHYLPHENIDATE HCL [Concomitant]
  6. PRAVASTATIN SODIUM [Concomitant]

REACTIONS (7)
  - BLOOD GLUCOSE INCREASED [None]
  - CEREBRAL INFARCTION [None]
  - DRUG EFFECT DECREASED [None]
  - FEELING ABNORMAL [None]
  - GLYCOSYLATED HAEMOGLOBIN INCREASED [None]
  - HYPOKINESIA [None]
  - THALAMUS HAEMORRHAGE [None]
